FAERS Safety Report 14290520 (Version 1)
Quarter: 2017Q4

REPORT INFORMATION
  Report Type: Spontaneous
  Country: US (occurrence: US)
  Receive Date: 20171215
  Receipt Date: 20171215
  Transmission Date: 20180321
  Serious: No
  Sender: FDA-Public Use
  Company Number: US-ENDO PHARMACEUTICALS INC-2017-003910

PATIENT
  Sex: Male
  Weight: 98.87 kg

DRUGS (1)
  1. TESTIM [Suspect]
     Active Substance: TESTOSTERONE
     Dosage: UNK MG, UNKNOWN
     Route: 062
     Dates: start: 2015

REACTIONS (1)
  - Tremor [Not Recovered/Not Resolved]
